FAERS Safety Report 9311130 (Version 3)
Quarter: 2013Q3

REPORT INFORMATION
  Report Type: Spontaneous
  Country: US (occurrence: US)
  Receive Date: 20130528
  Receipt Date: 20130812
  Transmission Date: 20140515
  Serious: No
  Sender: FDA-Public Use
  Company Number: US-PFIZER INC-2013159693

PATIENT
  Age: 44 Year
  Sex: Male

DRUGS (5)
  1. XALKORI [Suspect]
     Indication: LUNG NEOPLASM MALIGNANT
     Dosage: 250 MG, 2X/DAY (1 CAPSULE)
     Route: 048
     Dates: start: 20130403
  2. XALKORI [Suspect]
     Dosage: 250 MG, 1X/DAY
     Dates: start: 20130501, end: 20130504
  3. LORAZEPAM [Concomitant]
     Indication: ANXIETY
     Dosage: 1 MG, 4X/DAY
     Dates: start: 20130311
  4. SENOKOT [Concomitant]
     Indication: CONSTIPATION
     Dosage: UNK, AS NEEDED
  5. ZOFRAN [Concomitant]
     Indication: NAUSEA
     Dosage: 8 MG, AS NEEDED
     Dates: start: 20130430

REACTIONS (7)
  - Rash generalised [Unknown]
  - Urticaria [Unknown]
  - Nausea [Recovered/Resolved]
  - Stomatitis [Recovered/Resolved]
  - Heart rate increased [Recovered/Resolved]
  - Fatigue [Recovering/Resolving]
  - Neuropathy peripheral [Recovered/Resolved]
